FAERS Safety Report 14765674 (Version 3)
Quarter: 2018Q2

REPORT INFORMATION
  Report Type: Spontaneous
  Country: JP (occurrence: JP)
  Receive Date: 20180416
  Receipt Date: 20180629
  Transmission Date: 20180711
  Serious: Yes (Death, Hospitalization, Other)
  Sender: FDA-Public Use
  Company Number: JP-ELI_LILLY_AND_COMPANY-JP201804006232

PATIENT
  Age: 77 Year
  Sex: Male
  Weight: 52 kg

DRUGS (15)
  1. ALLOPURINOL. [Concomitant]
     Active Substance: ALLOPURINOL
     Indication: PRODUCT USED FOR UNKNOWN INDICATION
  2. MYSLEE [Concomitant]
     Active Substance: ZOLPIDEM TARTRATE
     Indication: PRODUCT USED FOR UNKNOWN INDICATION
  3. TRAMCET [Concomitant]
     Active Substance: ACETAMINOPHEN\TRAMADOL
     Indication: PRODUCT USED FOR UNKNOWN INDICATION
  4. FUROSEMIDE. [Concomitant]
     Active Substance: FUROSEMIDE
     Indication: PRODUCT USED FOR UNKNOWN INDICATION
  5. BAYASPIN [Concomitant]
     Indication: PRODUCT USED FOR UNKNOWN INDICATION
  6. CISPLATIN. [Suspect]
     Active Substance: CISPLATIN
     Indication: GINGIVAL CANCER
     Dosage: UNK UNK, UNKNOWN
     Route: 041
     Dates: start: 20180206, end: 20180320
  7. ATELEC [Concomitant]
     Active Substance: CILNIDIPINE
     Indication: PRODUCT USED FOR UNKNOWN INDICATION
  8. MINOMYCIN [Concomitant]
     Active Substance: MINOCYCLINE HYDROCHLORIDE
     Indication: PRODUCT USED FOR UNKNOWN INDICATION
  9. ERBITUX [Suspect]
     Active Substance: CETUXIMAB
     Dosage: 420 MG, WEEKLY (1/W)
     Route: 041
     Dates: start: 201802, end: 20180402
  10. 5 FU [Suspect]
     Active Substance: FLUOROURACIL
     Indication: GINGIVAL CANCER
     Dosage: UNK UNK, UNKNOWN
     Route: 041
     Dates: start: 20180206, end: 20180323
  11. ERBITUX [Suspect]
     Active Substance: CETUXIMAB
     Indication: GINGIVAL CANCER
     Dosage: 680 MG, UNKNOWN
     Route: 041
     Dates: start: 20180205, end: 20180205
  12. RANMARK [Concomitant]
     Active Substance: DENOSUMAB
     Indication: GINGIVAL CANCER
     Dosage: 120 MG, WEEKLY (1/W)
     Route: 058
     Dates: start: 20180216, end: 20180319
  13. DENOTAS [Concomitant]
     Active Substance: CALCIUM CARBONATE\CHOLECALCIFEROL\MAGNESIUM CARBONATE
     Indication: PRODUCT USED FOR UNKNOWN INDICATION
  14. LANSOPRAZOLE. [Concomitant]
     Active Substance: LANSOPRAZOLE
     Indication: PRODUCT USED FOR UNKNOWN INDICATION
  15. OLMESARTAN [Concomitant]
     Active Substance: OLMESARTAN
     Indication: PRODUCT USED FOR UNKNOWN INDICATION

REACTIONS (5)
  - Acute respiratory distress syndrome [Fatal]
  - Pleural effusion [Recovering/Resolving]
  - Off label use [Unknown]
  - Interstitial lung disease [Fatal]
  - Fatigue [Unknown]

NARRATIVE: CASE EVENT DATE: 201804
